FAERS Safety Report 4466319-3 (Version None)
Quarter: 2004Q4

REPORT INFORMATION
  Report Type: 
  Country: None (occurrence: None)
  Receive Date: 20041005
  Receipt Date: 20041001
  Transmission Date: 20050328
  Serious: Yes (Hospitalization)
  Sender: FDA-Public Use
  Company Number: US-GLAXOSMITHKLINE-A0528132A

PATIENT
  Age: 39 Year
  Sex: Female

DRUGS (3)
  1. WELLBUTRIN [Suspect]
     Dosage: 450MG PER DAY
     Route: 048
     Dates: start: 20040301, end: 20040918
  2. RITALIN [Concomitant]
  3. LITHIUM [Concomitant]

REACTIONS (3)
  - CONVULSION [None]
  - FALL [None]
  - LACERATION [None]
